FAERS Safety Report 24571162 (Version 2)
Quarter: 2025Q3

REPORT INFORMATION
  Report Type: Spontaneous
  Country: EU (occurrence: EU)
  Receive Date: 20241101
  Receipt Date: 20250809
  Transmission Date: 20251020
  Serious: Yes (Hospitalization, Other)
  Sender: ALEXION PHARMACEUTICALS
  Company Number: None

PATIENT
  Age: 66 Year
  Sex: Male
  Weight: 148 kg

DRUGS (22)
  1. DAPAGLIFLOZIN [Suspect]
     Active Substance: DAPAGLIFLOZIN
     Indication: Hypothyroidism
     Dates: end: 20241001
  2. AMIODARONE [Suspect]
     Active Substance: AMIODARONE
     Indication: Hypothyroidism
     Dates: start: 202107
  3. AMIODARONE [Suspect]
     Active Substance: AMIODARONE
     Indication: Atrial fibrillation
  4. AMLODIPINE [Suspect]
     Active Substance: AMLODIPINE BESYLATE
     Indication: Hypertension
     Dates: end: 20241005
  5. AMLODIPINE [Suspect]
     Active Substance: AMLODIPINE BESYLATE
     Indication: Hypertension
  6. IRBESARTAN [Suspect]
     Active Substance: IRBESARTAN
     Indication: Diabetes mellitus
     Dates: start: 202402, end: 20241001
  7. IRBESARTAN [Suspect]
     Active Substance: IRBESARTAN
     Indication: Diabetes mellitus
  8. URAPIDIL [Suspect]
     Active Substance: URAPIDIL
     Indication: Hypertension
     Dates: end: 20241003
  9. URAPIDIL [Suspect]
     Active Substance: URAPIDIL
     Indication: Hypertension
  10. LEVOTHYROXINE [Concomitant]
     Active Substance: LEVOTHYROXINE
  11. XARELTO [Concomitant]
     Active Substance: RIVAROXABAN
     Dates: end: 20241004
  12. FUROSEMIDE [Concomitant]
     Active Substance: FUROSEMIDE
  13. SYMBICORT [Concomitant]
     Active Substance: BUDESONIDE\FORMOTEROL FUMARATE DIHYDRATE
  14. SPIRIVA [Concomitant]
     Active Substance: TIOTROPIUM BROMIDE MONOHYDRATE
  15. ALLOPURINOL [Concomitant]
     Active Substance: ALLOPURINOL
  16. HUMALOG [Concomitant]
     Active Substance: INSULIN LISPRO
  17. TRESIBA [Concomitant]
     Active Substance: INSULIN DEGLUDEC
  18. OZEMPIC [Concomitant]
     Active Substance: SEMAGLUTIDE
  19. DAPAGLIFLOZIN [Suspect]
     Active Substance: DAPAGLIFLOZIN
     Indication: Diabetes mellitus
     Dosage: 10 MILLIGRAM
     Dates: end: 20241001
  20. LEVOTHYROXINE SODIUM [Concomitant]
     Active Substance: LEVOTHYROXINE SODIUM
     Dosage: 1 DOSAGE FORM
  21. XARELTO [Concomitant]
     Active Substance: RIVAROXABAN
     Dosage: 1 DOSAGE FORM
     Dates: end: 20241004
  22. OZEMPIC 0,5 mg, solution injectable en stylo pr?rempli [Concomitant]
     Dosage: 1 DOSAGE FORM

REACTIONS (1)
  - Hepatic cytolysis [Recovering/Resolving]

NARRATIVE: CASE EVENT DATE: 20241001
